FAERS Safety Report 4698828-6 (Version None)
Quarter: 2005Q2

REPORT INFORMATION
  Report Type: 
  Country: None (occurrence: None)
  Receive Date: 20050623
  Receipt Date: 20050610
  Transmission Date: 20051028
  Serious: Yes (Other)
  Sender: FDA-Public Use
  Company Number: 2005068195

PATIENT
  Age: 77 Year
  Sex: Male
  Weight: 75.7507 kg

DRUGS (3)
  1. SUDAFED SEVERE COLD CAPLETS (PARACETAMOL, PSEUDOEPHEDRINE, DEXTROMETHO [Suspect]
     Indication: NASOPHARYNGITIS
     Dosage: ONE DOSE THREE TIMES, ORAL
     Route: 048
     Dates: start: 20050426, end: 20050427
  2. LOTREL [Concomitant]
  3. HYDROCHLOROTHIAZIDE [Concomitant]

REACTIONS (5)
  - INSOMNIA [None]
  - MALAISE [None]
  - MUSCLE SPASMS [None]
  - PAIN [None]
  - URINARY RETENTION [None]
